FAERS Safety Report 23561931 (Version 1)
Quarter: 2024Q1

REPORT INFORMATION
  Report Type: Spontaneous
  Country: GB (occurrence: None)
  Receive Date: 20240225
  Receipt Date: 20240225
  Transmission Date: 20240409
  Serious: Yes (Other)
  Sender: FDA-Public Use
  Company Number: 2024A040396

PATIENT
  Sex: Male

DRUGS (1)
  1. CALQUENCE [Suspect]
     Active Substance: ACALABRUTINIB
     Dosage: 100MG BD; ;
     Route: 048

REACTIONS (3)
  - Hepatic pain [Unknown]
  - White blood cell count [Unknown]
  - Heart rate abnormal [Unknown]
